FAERS Safety Report 7363044-6 (Version None)
Quarter: 2011Q1

REPORT INFORMATION
  Report Type: 
  Country: None (occurrence: None)
  Receive Date: 20110321
  Receipt Date: 20110311
  Transmission Date: 20110831
  Serious: Yes (Death)
  Sender: FDA-Public Use
  Company Number: US-PFIZER INC-2010058372

PATIENT
  Sex: Male

DRUGS (21)
  1. TOPAMAX [Suspect]
     Dosage: 200 MG, 4X/DAY
     Dates: start: 20060209, end: 20060728
  2. TOPAMAX [Suspect]
     Dosage: 200 MG, 1X/DAY
     Dates: start: 20060102, end: 20060201
  3. TOPAMAX [Suspect]
     Indication: TRIGEMINAL NEURALGIA
     Dosage: 25 MG, 2X/DAY
     Dates: start: 20080303
  4. TOPAMAX [Suspect]
     Dosage: 25 MG, 4X/DAY
     Dates: start: 20080303, end: 20080411
  5. TOPAMAX [Suspect]
     Dosage: 100 MG, 4X/DAY
     Dates: start: 20080319
  6. NIFEDIPINE [Concomitant]
     Dosage: 90 MG, 1X/DAY
     Dates: start: 20071002, end: 20080424
  7. LISINOPRIL [Concomitant]
     Dosage: 40 MG, 2X/DAY
     Dates: start: 20050629, end: 20051017
  8. NEURONTIN [Suspect]
     Indication: TRIGEMINAL NEURALGIA
     Dosage: UNK
  9. TOPAMAX [Suspect]
     Dosage: 200 MG, 3X/DAY
     Dates: start: 20051104, end: 20060102
  10. CLONIDINE [Concomitant]
     Dosage: 0.2 MG, 3X/DAY
     Dates: start: 20071108, end: 20080505
  11. VIAGRA [Concomitant]
     Dosage: 50 MG, UNK
     Dates: start: 20060628
  12. NIFEDIPINE [Concomitant]
     Dosage: 90 MG, 2X/DAY
     Dates: start: 20060628, end: 20070828
  13. LISINOPRIL [Concomitant]
     Dosage: 40 MG, 1X/DAY
     Dates: start: 20060731, end: 20080508
  14. LISINOPRIL [Concomitant]
     Dosage: 20 MG, 3X/DAY
     Dates: start: 20040830, end: 20050601
  15. GABAPENTIN [Suspect]
     Indication: TRIGEMINAL NEURALGIA
     Dosage: UNK
     Route: 048
  16. VIAGRA [Concomitant]
     Dosage: 50 MG, UNK
     Dates: start: 20070115, end: 20080509
  17. CLONIDINE [Concomitant]
     Dosage: 0.2 MG, 3X/DAY
     Dates: start: 20060830, end: 20070729
  18. ZONISAMIDE [Suspect]
     Indication: TRIGEMINAL NEURALGIA
     Dosage: 100 MG, 6X/DAY
     Dates: start: 20060731, end: 20080414
  19. CLONIDINE [Concomitant]
     Dosage: 0.2 MG, 2X/DAY
     Dates: start: 20060605, end: 20060731
  20. LISINOPRIL [Concomitant]
     Dosage: 40 MG, 1X/DAY
     Dates: start: 20051102, end: 20060401
  21. LISINOPRIL [Concomitant]
     Dosage: 20 MG, 1X/DAY
     Dates: start: 20030520, end: 20040816

REACTIONS (1)
  - COMPLETED SUICIDE [None]
